FAERS Safety Report 4357237-X (Version None)
Quarter: 2004Q2

REPORT INFORMATION
  Report Type: 
  Country: None (occurrence: None)
  Receive Date: 20040507
  Receipt Date: 20040419
  Transmission Date: 20050107
  Serious: Yes (Death)
  Sender: FDA-Public Use
  Company Number: USA021123338

PATIENT
  Age: 47 Year
  Sex: Male

DRUGS (3)
  1. ZYPREXA [Suspect]
     Indication: AFFECTIVE DISORDER
     Dosage: 20 MG/DAY
     Dates: start: 20021001, end: 20021029
  2. XANAX [Concomitant]
  3. PAXIL [Concomitant]

REACTIONS (4)
  - CARDIAC FAILURE CONGESTIVE [None]
  - COMA [None]
  - FATIGUE [None]
  - MYOCARDIAL INFARCTION [None]
